FAERS Safety Report 19093646 (Version 1)
Quarter: 2021Q2

REPORT INFORMATION
  Report Type: Other
  Country: GB (occurrence: GB)
  Receive Date: 20210405
  Receipt Date: 20210405
  Transmission Date: 20210717
  Serious: No
  Sender: FDA-Public Use
  Company Number: GB-LUPIN PHARMACEUTICALS INC.-2021-03973

PATIENT
  Age: 76 Year
  Sex: Female
  Weight: 62 kg

DRUGS (25)
  1. ALENDRONIC ACID [Concomitant]
     Active Substance: ALENDRONIC ACID
     Indication: ILL-DEFINED DISORDER
     Dosage: UNK, TAKE ONE WEEKLY ON AN EMPTY STOMACH, WITH PLENT...
     Route: 065
     Dates: start: 20210205
  2. BRINZOLAMIDE [Concomitant]
     Active Substance: BRINZOLAMIDE
     Indication: ILL-DEFINED DISORDER
     Dosage: 1 DROP, BID
     Route: 065
     Dates: start: 20200605, end: 20210211
  3. DIAZEPAM. [Concomitant]
     Active Substance: DIAZEPAM
     Indication: ILL-DEFINED DISORDER
     Dosage: UNK, ONE AT NIGHT FOR ANXIETY AND SLEEP AND PAIN . MAXIMUM 2 PER DAY . NOT TO TAKE REGULARLY
     Route: 065
     Dates: start: 20210225
  4. FLUCONAZOLE. [Concomitant]
     Active Substance: FLUCONAZOLE
     Indication: ILL-DEFINED DISORDER
     Dosage: UNK, 1 STAT FOR THE FUNGAL INFECTION
     Route: 065
     Dates: start: 20210129, end: 20210130
  5. ZOPICLONE [Concomitant]
     Active Substance: ZOPICLONE
     Indication: SLEEP DISORDER
  6. DIAZEPAM. [Concomitant]
     Active Substance: DIAZEPAM
     Indication: PAIN
  7. LAXIDO [Concomitant]
     Active Substance: POLYETHYLENE GLYCOL 3350\POTASSIUM CHLORIDE\SODIUM BICARBONATE\SODIUM CHLORIDE
     Indication: ILL-DEFINED DISORDER
     Dosage: UNK, TAKE THE CONTENTS OF ONE SACHET DAILY IF NEEDED...
     Route: 065
     Dates: start: 20200605
  8. AMITRIPTYLINE HYDROCHLORIDE. [Concomitant]
     Active Substance: AMITRIPTYLINE HYDROCHLORIDE
     Indication: ILL-DEFINED DISORDER
     Dosage: UNK, START WITH ONE AT NIGHT, GRADUALLY INCREASING T...
     Route: 065
     Dates: start: 20210108, end: 20210113
  9. DICLOFENAC SODIUM. [Concomitant]
     Active Substance: DICLOFENAC SODIUM
     Indication: PAIN
  10. CODEINE PHOSPHATE [Concomitant]
     Active Substance: CODEINE PHOSPHATE
     Indication: ILL-DEFINED DISORDER
     Dosage: UNK, TAKE ONE OR 2 UP 4 TIMES/DAY PRN PAIN
     Route: 065
     Dates: start: 20210113, end: 20210127
  11. DIAZEPAM. [Concomitant]
     Active Substance: DIAZEPAM
     Indication: ANXIETY
  12. DICLOFENAC SODIUM. [Concomitant]
     Active Substance: DICLOFENAC SODIUM
     Indication: ILL-DEFINED DISORDER
     Dosage: UNK, TID, TAKE ONE 3 TIMES/DAY FOR PAIN
     Route: 065
     Dates: start: 20210106, end: 20210203
  13. MIRTAZAPINE. [Concomitant]
     Active Substance: MIRTAZAPINE
     Indication: ILL-DEFINED DISORDER
     Dosage: UNK, TAKE ONE AT NIGHT AFTER ONE WEEK IF NO SIDE EFF...
     Route: 065
     Dates: start: 20210225
  14. QUININE [Concomitant]
     Active Substance: QUININE
     Indication: ILL-DEFINED DISORDER
     Dosage: UNK, TAKE ONE AT NIGHT
     Route: 065
     Dates: start: 20210215, end: 20210315
  15. SERTRALINE [Suspect]
     Active Substance: SERTRALINE HYDROCHLORIDE
     Indication: PRODUCT USED FOR UNKNOWN INDICATION
     Dosage: 50 MILLIGRAM, UNK
     Route: 065
  16. SERTRALINE [Suspect]
     Active Substance: SERTRALINE HYDROCHLORIDE
     Dosage: UNK, TAKE HALF DAILY AND INCREASE TO ONE DAILY AFTER...
     Route: 065
     Dates: start: 20210211
  17. DIAZEPAM. [Concomitant]
     Active Substance: DIAZEPAM
     Indication: SLEEP DISORDER
  18. TIMOLOL. [Concomitant]
     Active Substance: TIMOLOL
     Indication: ILL-DEFINED DISORDER
     Dosage: 1 DROP, QD
     Route: 047
     Dates: start: 20200605
  19. CO?AMOXICLAV [AMOXICILLIN;CLAVULANATE POTASSIUM] [Concomitant]
     Active Substance: AMOXICILLIN\CLAVULANATE POTASSIUM
     Indication: ILL-DEFINED DISORDER
     Dosage: UNK UNK, TID, TAKE ONE 3 TIMES/DAY
     Route: 065
     Dates: start: 20210129, end: 20210205
  20. ESTRADIOL. [Concomitant]
     Active Substance: ESTRADIOL
     Indication: ILL-DEFINED DISORDER
     Dosage: UNK,ONE VAGINAL TABLET TO BE INSERTED TWICE A WEEK
     Route: 065
     Dates: start: 20200605
  21. FLUCONAZOLE. [Concomitant]
     Active Substance: FLUCONAZOLE
     Indication: FUNGAL INFECTION
  22. MORPHINE SULFATE. [Concomitant]
     Active Substance: MORPHINE SULFATE
     Indication: ILL-DEFINED DISORDER
     Dosage: UNK, TAKE 2.5 TO 5MLS (=5MG OR 10MG) MAXIMUM EVERY 4...
     Route: 065
     Dates: start: 20210113, end: 20210210
  23. OMEPRAZOLE. [Concomitant]
     Active Substance: OMEPRAZOLE
     Indication: ILL-DEFINED DISORDER
     Dosage: UNK, TAKE ONE ON EVERY DAY  IF ANY INDIGESION WITH SERTRALINE
     Route: 065
     Dates: start: 20210211, end: 20210303
  24. PARACETAMOL [Concomitant]
     Active Substance: ACETAMINOPHEN
     Indication: ILL-DEFINED DISORDER
     Dosage: UNK, TAKE 2 EVERY 4 TO 6 HOURS AS REQUIRED TO A MAXIMUM OF 8 IN 24 HOURS AS REQUIRED
     Route: 065
     Dates: start: 20210219
  25. ZOPICLONE [Concomitant]
     Active Substance: ZOPICLONE
     Indication: ILL-DEFINED DISORDER
     Dosage: 1 DOSAGE FORM, PRN
     Route: 065
     Dates: start: 20210224

REACTIONS (1)
  - Insomnia [Recovered/Resolved]
